FAERS Safety Report 14441866 (Version 2)
Quarter: 2018Q2

REPORT INFORMATION
  Report Type: Spontaneous
  Country: PL (occurrence: PL)
  Receive Date: 20180125
  Receipt Date: 20180508
  Transmission Date: 20180711
  Serious: Yes (Hospitalization, Other)
  Sender: FDA-Public Use
  Company Number: PL-MYLANLABS-2015M1044538

PATIENT
  Age: 56 Year
  Sex: Male

DRUGS (8)
  1. PROGRAF [Suspect]
     Active Substance: TACROLIMUS\TACROLIMUS ANHYDROUS
     Indication: RENAL TRANSPLANT
  2. VALGANCICLOVIR. [Concomitant]
     Active Substance: VALGANCICLOVIR
     Indication: ANTIVIRAL PROPHYLAXIS
  3. METOPROLOL. [Suspect]
     Active Substance: METOPROLOL
     Indication: PRODUCT USED FOR UNKNOWN INDICATION
     Route: 065
  4. PROGRAF [Suspect]
     Active Substance: TACROLIMUS\TACROLIMUS ANHYDROUS
     Indication: IMMUNOSUPPRESSANT DRUG THERAPY
     Dosage: UNK
     Route: 065
  5. MYCOPHENOLATE MOFETIL. [Suspect]
     Active Substance: MYCOPHENOLATE MOFETIL
     Indication: RENAL TRANSPLANT
     Dosage: UNK
     Route: 065
  6. IMIPENEM [Concomitant]
     Active Substance: IMIPENEM
     Indication: IMMUNOSUPPRESSANT DRUG THERAPY
     Route: 065
  7. VALGANCICLOVIR. [Concomitant]
     Active Substance: VALGANCICLOVIR
     Indication: IMMUNOSUPPRESSANT DRUG THERAPY
     Route: 042
  8. LINEZOLID. [Concomitant]
     Active Substance: LINEZOLID
     Indication: IMMUNOSUPPRESSANT DRUG THERAPY
     Route: 042

REACTIONS (14)
  - Escherichia infection [Unknown]
  - Urine output decreased [Unknown]
  - Enterococcal infection [Unknown]
  - General physical health deterioration [Unknown]
  - Hydronephrosis [Unknown]
  - Klebsiella infection [Unknown]
  - Immunosuppressant drug level increased [Unknown]
  - Transplant dysfunction [Recovering/Resolving]
  - Dysuria [Unknown]
  - Abdominal pain [Unknown]
  - Sinus bradycardia [Unknown]
  - Altered state of consciousness [Unknown]
  - Urinary tract infection [Unknown]
  - Amylase increased [Unknown]
